FAERS Safety Report 20583653 (Version 1)
Quarter: 2022Q1

REPORT INFORMATION
  Report Type: Spontaneous
  Country: US (occurrence: None)
  Receive Date: 20220309
  Receipt Date: 20220309
  Transmission Date: 20220423
  Serious: Yes (Death)
  Sender: FDA-Public Use
  Company Number: None

PATIENT
  Age: 71 Year
  Sex: Male
  Weight: 73 kg

DRUGS (1)
  1. ALPHA LIPOIC ACID [Suspect]
     Active Substance: .ALPHA.-LIPOIC ACID
     Indication: Chronic myelomonocytic leukaemia
     Dates: start: 20220216

REACTIONS (1)
  - Infusion related reaction [None]

NARRATIVE: CASE EVENT DATE: 20220216
